FAERS Safety Report 20136583 (Version 1)
Quarter: 2021Q4

REPORT INFORMATION
  Report Type: Spontaneous
  Country: US (occurrence: None)
  Receive Date: 20211201
  Receipt Date: 20211201
  Transmission Date: 20220303
  Serious: Yes (Other)
  Sender: FDA-Public Use
  Company Number: None

PATIENT

DRUGS (1)
  1. TIMOLOL [Suspect]
     Active Substance: TIMOLOL

REACTIONS (2)
  - Eye irritation [None]
  - Eye irritation [None]
